FAERS Safety Report 18680448 (Version 4)
Quarter: 2025Q3

REPORT INFORMATION
  Report Type: Report from Study
  Country: CA (occurrence: CA)
  Receive Date: 20201230
  Receipt Date: 20250905
  Transmission Date: 20251020
  Serious: Yes (Other)
  Sender: TAKEDA
  Company Number: CA-TAKEDA-2019TUS038489

PATIENT
  Sex: Male

DRUGS (2)
  1. IXAZOMIB [Suspect]
     Active Substance: IXAZOMIB
     Indication: Plasma cell myeloma
     Dosage: 2.3 MILLIGRAM, Q2WEEKS
     Dates: start: 20170206
  2. POMALIDOMIDE [Concomitant]
     Active Substance: POMALIDOMIDE

REACTIONS (2)
  - Malignant melanoma [Unknown]
  - Dizziness [Unknown]
